FAERS Safety Report 8823038 (Version 1)
Quarter: 2012Q4

REPORT INFORMATION
  Report Type: 
  Country: GB (occurrence: GB)
  Receive Date: 20121003
  Receipt Date: 20121003
  Transmission Date: 20130627
  Serious: Yes (Other)
  Sender: FDA-Public Use
  Company Number: GB-BAYER-2012-099013

PATIENT
  Sex: Male

DRUGS (1)
  1. ACETYLSALICYLIC ACID({=100 MG) [Suspect]
     Route: 064

REACTIONS (3)
  - Fallot^s tetralogy [None]
  - Pulmonary valve stenosis congenital [None]
  - Ductus arteriosus stenosis foetal [None]
